FAERS Safety Report 4794984-X (Version None)
Quarter: 2005Q4

REPORT INFORMATION
  Report Type: 
  Country: None (occurrence: None)
  Receive Date: 20051006
  Receipt Date: 20050921
  Transmission Date: 20060501
  Serious: Yes (Hospitalization)
  Sender: FDA-Public Use
  Company Number: 2005US001371

PATIENT
  Age: 64 Year
  Sex: Male

DRUGS (6)
  1. AMBISOME [Suspect]
     Indication: PYREXIA
     Dosage: 5.00 MG/KG, UID/QD, IV NOS
     Route: 042
  2. RITUXIMAB (RITUXIMAB) [Concomitant]
  3. CYCLOPHOSPHAMIDE [Concomitant]
  4. DOXORUBICIN HCL [Concomitant]
  5. VINCRISTINE [Concomitant]
  6. PREDNISONE [Concomitant]

REACTIONS (19)
  - CHEST DISCOMFORT [None]
  - CONGESTIVE CARDIOMYOPATHY [None]
  - DIZZINESS [None]
  - DRUG TOXICITY [None]
  - DYSPNOEA [None]
  - EJECTION FRACTION DECREASED [None]
  - GALLOP RHYTHM PRESENT [None]
  - GENERAL PHYSICAL HEALTH DETERIORATION [None]
  - HAEMATOCRIT DECREASED [None]
  - HYPERHIDROSIS [None]
  - HYPOTENSION [None]
  - NEUTROPENIA [None]
  - ORTHOPNOEA [None]
  - PLATELET COUNT DECREASED [None]
  - PYREXIA [None]
  - RALES [None]
  - VENOUS PRESSURE JUGULAR INCREASED [None]
  - VENTRICULAR DYSFUNCTION [None]
  - WHITE BLOOD CELL COUNT DECREASED [None]
